FAERS Safety Report 10288970 (Version 2)
Quarter: 2014Q3

REPORT INFORMATION
  Report Type: Spontaneous
  Country: GB (occurrence: GB)
  Receive Date: 20140709
  Receipt Date: 20140805
  Transmission Date: 20150326
  Serious: Yes (Life-Threatening, Other)
  Sender: FDA-Public Use
  Company Number: GB-009507513-1407GBR003347

PATIENT
  Age: 78 Year
  Sex: Male
  Weight: 76.2 kg

DRUGS (8)
  1. WARFARIN [Concomitant]
     Active Substance: WARFARIN
  2. FYBOGEL [Concomitant]
     Active Substance: PLANTAGO OVATA SEED
  3. LACTULOSE. [Concomitant]
     Active Substance: LACTULOSE
  4. SIMVASTATIN. [Concomitant]
     Active Substance: SIMVASTATIN
  5. PREDNISOLONE. [Concomitant]
     Active Substance: PREDNISOLONE
  6. ALENDRONATE SODIUM. [Suspect]
     Active Substance: ALENDRONATE SODIUM
     Indication: OSTEOPOROSIS CIRCUMSCRIPTA CRANII
     Dosage: 70 MG, UNK
     Route: 048
     Dates: start: 20140101
  7. DRONEDARONE [Concomitant]
     Active Substance: DRONEDARONE
  8. AMLODIPINE [Concomitant]
     Active Substance: AMLODIPINE BESYLATE

REACTIONS (7)
  - Wheezing [Not Recovered/Not Resolved]
  - Laryngeal disorder [Not Recovered/Not Resolved]
  - Choking [Not Recovered/Not Resolved]
  - Haemoptysis [Not Recovered/Not Resolved]
  - Obstructive airways disorder [Recovered/Resolved]
  - Productive cough [Not Recovered/Not Resolved]
  - Asthma [Not Recovered/Not Resolved]

NARRATIVE: CASE EVENT DATE: 20140313
